FAERS Safety Report 19287616 (Version 1)
Quarter: 2021Q2

REPORT INFORMATION
  Report Type: Spontaneous
  Country: CH (occurrence: CH)
  Receive Date: 20210521
  Receipt Date: 20210521
  Transmission Date: 20210717
  Serious: Yes (Other)
  Sender: FDA-Public Use
  Company Number: CH-TOPROL-2021000088

PATIENT
  Age: 73 Year
  Sex: Female
  Weight: 82 kg

DRUGS (18)
  1. NOVORAPID [Suspect]
     Active Substance: INSULIN ASPART
     Route: 065
  2. BELOC ZOK [Suspect]
     Active Substance: METOPROLOL SUCCINATE
     Dosage: LONG?TERM
     Route: 048
  3. TORASEMIDE [Suspect]
     Active Substance: TORSEMIDE
     Route: 048
     Dates: start: 20210306, end: 20210307
  4. VOLTAREN PATCH [Suspect]
     Active Substance: DICLOFENAC EPOLAMINE
     Route: 065
  5. ONDANSETRON [Suspect]
     Active Substance: ONDANSETRON
     Route: 041
     Dates: start: 20210307, end: 20210307
  6. DALMADORM [Suspect]
     Active Substance: FLURAZEPAM HYDROCHLORIDE
     Dosage: 30 MILLIGRAM, TOTAL (IN THE EVENING)
     Route: 048
     Dates: start: 20210306, end: 20210306
  7. PARACETAMOL [Suspect]
     Active Substance: ACETAMINOPHEN
     Dosage: 3 TO 4X/DAY
     Route: 065
  8. DIBASE [Suspect]
     Active Substance: CHOLECALCIFEROL
     Route: 065
  9. TEMESTA (LORAZEPAM) [Suspect]
     Active Substance: LORAZEPAM
     Dosage: IN THE EVENING, FOR LONG?TERM
     Route: 048
  10. ASPIRIN CARDIO [Suspect]
     Active Substance: ASPIRIN
     Route: 065
  11. APROVEL [Suspect]
     Active Substance: IRBESARTAN
     Route: 065
     Dates: end: 20210304
  12. ELTROXIN (LEVOTHYROXINE SODIUM) [Suspect]
     Active Substance: LEVOTHYROXINE
     Route: 055
  13. LANTUS [Suspect]
     Active Substance: INSULIN GLARGINE
     Route: 065
  14. ATACAND [Suspect]
     Active Substance: CANDESARTAN CILEXETIL
     Route: 048
     Dates: start: 20210306, end: 20210307
  15. QUETIAPINE. [Suspect]
     Active Substance: QUETIAPINE
     Dosage: BID, LONG?TERM
     Route: 048
  16. LAMICTAL [Suspect]
     Active Substance: LAMOTRIGINE
     Dosage: BID
     Route: 065
  17. SYMFONA [GINKGO BILOBA EXTRACT] [Suspect]
     Active Substance: GINKGO
     Route: 065
  18. OZEMPIC [Suspect]
     Active Substance: SEMAGLUTIDE
     Route: 065

REACTIONS (3)
  - Hypotension [Recovered/Resolved]
  - Malaise [Recovered/Resolved]
  - Tachycardia [Unknown]

NARRATIVE: CASE EVENT DATE: 20210307
